FAERS Safety Report 16292401 (Version 2)
Quarter: 2020Q4

REPORT INFORMATION
  Report Type: Spontaneous
  Country: US (occurrence: US)
  Receive Date: 20190509
  Receipt Date: 20201028
  Transmission Date: 20210113
  Serious: Yes (Other)
  Sender: FDA-Public Use
  Company Number: US-ASTRAZENECA-2018SF47883

PATIENT
  Age: 800 Month
  Sex: Female
  Weight: 91.2 kg

DRUGS (34)
  1. NEXIUM [Suspect]
     Active Substance: ESOMEPRAZOLE MAGNESIUM
     Indication: GASTROOESOPHAGEAL REFLUX DISEASE
     Dosage: GENERIC
     Route: 065
     Dates: start: 20151106, end: 20151130
  2. PANTOPRAZOLE [Concomitant]
     Active Substance: PANTOPRAZOLE
  3. PROCHLORPERAZINE. [Concomitant]
     Active Substance: PROCHLORPERAZINE
  4. LORAZEPAM. [Concomitant]
     Active Substance: LORAZEPAM
  5. LEVETIRACETAM. [Concomitant]
     Active Substance: LEVETIRACETAM
  6. RANITIDINE. [Concomitant]
     Active Substance: RANITIDINE
  7. DOXYCYCLINE. [Concomitant]
     Active Substance: DOXYCYCLINE
  8. AVELOX [Concomitant]
     Active Substance: MOXIFLOXACIN HYDROCHLORIDE
  9. TOPIRAMATE. [Concomitant]
     Active Substance: TOPIRAMATE
  10. GABAPENTIN. [Concomitant]
     Active Substance: GABAPENTIN
  11. TAMSULOSIN [Concomitant]
     Active Substance: TAMSULOSIN
  12. CARISOPRODOL. [Concomitant]
     Active Substance: CARISOPRODOL
  13. ALBUTEROL. [Concomitant]
     Active Substance: ALBUTEROL
  14. NEXIUM [Suspect]
     Active Substance: ESOMEPRAZOLE MAGNESIUM
     Indication: GASTROOESOPHAGEAL REFLUX DISEASE
     Route: 048
     Dates: start: 20020101, end: 20150130
  15. PRILOSEC [Suspect]
     Active Substance: OMEPRAZOLE MAGNESIUM
     Indication: GASTROOESOPHAGEAL REFLUX DISEASE
     Dosage: GENERIC
     Route: 065
     Dates: start: 20080331, end: 20080616
  16. AZITHROMYCIN ANHYDROUS. [Concomitant]
     Active Substance: AZITHROMYCIN ANHYDROUS
  17. CLINDAMYCIN. [Concomitant]
     Active Substance: CLINDAMYCIN
  18. PRILOSEC [Suspect]
     Active Substance: OMEPRAZOLE MAGNESIUM
     Indication: GASTROOESOPHAGEAL REFLUX DISEASE
     Route: 048
  19. OXYCODONE [Concomitant]
     Active Substance: OXYCODONE
  20. WARFARIN [Concomitant]
     Active Substance: WARFARIN
  21. VITAMIN D [Concomitant]
     Active Substance: VITAMIN D NOS
  22. FLUVIRIN NOS [Concomitant]
     Active Substance: INFLUENZA VIRUS VACCINE
  23. CARISOPRODOL. [Concomitant]
     Active Substance: CARISOPRODOL
  24. FUROSEMIDE. [Concomitant]
     Active Substance: FUROSEMIDE
  25. DOXEPIN [Concomitant]
     Active Substance: DOXEPIN
  26. METOPROLOL. [Concomitant]
     Active Substance: METOPROLOL
  27. RENVELA [Concomitant]
     Active Substance: SEVELAMER CARBONATE
  28. NEXIUM [Suspect]
     Active Substance: ESOMEPRAZOLE MAGNESIUM
     Indication: GASTROOESOPHAGEAL REFLUX DISEASE
     Route: 048
  29. FLUTICASONE. [Concomitant]
     Active Substance: FLUTICASONE
     Indication: SKIN DISORDER
  30. PROPOXYPHENE. [Concomitant]
     Active Substance: PROPOXYPHENE
  31. CLOTRIMAZOLE. [Concomitant]
     Active Substance: CLOTRIMAZOLE
  32. LISINOPRIL. [Concomitant]
     Active Substance: LISINOPRIL
     Indication: HYPERTENSION
  33. CIPROFLOXACIN. [Concomitant]
     Active Substance: CIPROFLOXACIN
  34. LYRICA [Concomitant]
     Active Substance: PREGABALIN

REACTIONS (6)
  - End stage renal disease [Unknown]
  - Hyperparathyroidism secondary [Unknown]
  - Chronic kidney disease-mineral and bone disorder [Unknown]
  - Tubulointerstitial nephritis [Unknown]
  - Nephrogenic anaemia [Unknown]
  - Chronic kidney disease [Not Recovered/Not Resolved]

NARRATIVE: CASE EVENT DATE: 201601
